FAERS Safety Report 9632810 (Version 2)
Quarter: 2013Q4

REPORT INFORMATION
  Report Type: Spontaneous
  Country: BR (occurrence: BR)
  Receive Date: 20131018
  Receipt Date: 20131115
  Transmission Date: 20140711
  Serious: Yes (Death, Hospitalization, Other)
  Sender: FDA-Public Use
  Company Number: BR-CTI_01600_2013

PATIENT
  Sex: Male

DRUGS (2)
  1. CUROSURF - PORACTANT ALFA [Suspect]
     Indication: NEONATAL RESPIRATORY DISTRESS SYNDROME
     Route: 039
     Dates: start: 201309, end: 201309
  2. CUROSURF - PORACTANT ALFA [Suspect]
     Dosage: DF (SECOND BATCH)
     Route: 039
     Dates: start: 2013

REACTIONS (3)
  - Drug ineffective [Fatal]
  - Drug administration error [Fatal]
  - Product quality issue [None]
